FAERS Safety Report 8984611 (Version 1)
Quarter: 2012Q4

REPORT INFORMATION
  Report Type: 
  Country: BR (occurrence: BR)
  Receive Date: 20121225
  Receipt Date: 20121225
  Transmission Date: 20130627
  Serious: Yes (Hospitalization, Other)
  Sender: FDA-Public Use
  Company Number: BR-SANOFI-AVENTIS-2012SA092064

PATIENT
  Sex: Male
  Weight: 1.7 kg

DRUGS (2)
  1. CLEXANE [Suspect]
     Indication: MATERNAL DRUG EXPOSURE
     Route: 064
     Dates: start: 201204, end: 201210
  2. AAS [Suspect]
     Indication: MATERNAL DRUG EXPOSURE
     Route: 064
     Dates: start: 201204, end: 20121019

REACTIONS (4)
  - Respiratory disorder neonatal [Recovered/Resolved]
  - Cerebral haemorrhage [Not Recovered/Not Resolved]
  - Exposure during pregnancy [Unknown]
  - Prescribed overdose [Unknown]
